FAERS Safety Report 13050780 (Version 3)
Quarter: 2017Q1

REPORT INFORMATION
  Report Type: Other
  Country: JP (occurrence: JP)
  Receive Date: 20161221
  Receipt Date: 20170125
  Transmission Date: 20170428
  Serious: Yes (Other)
  Sender: FDA-Public Use
  Company Number: JP-WARNER CHILCOTT, LLC-1061105

PATIENT
  Age: 80 Year
  Sex: Female

DRUGS (4)
  1. VITAMIN K [Concomitant]
     Active Substance: PHYTONADIONE
  2. BENET [Suspect]
     Active Substance: RISEDRONATE SODIUM
     Route: 048
  3. ACTONEL [Suspect]
     Active Substance: RISEDRONATE SODIUM
     Indication: OSTEOPOROSIS
     Route: 048
  4. MENATETRENONE [Concomitant]
     Active Substance: MENATETRENONE

REACTIONS (11)
  - Fall [Unknown]
  - Osteoarthritis [Unknown]
  - Atypical femur fracture [Unknown]
  - Condition aggravated [Unknown]
  - Femoral neck fracture [Unknown]
  - Osteoporosis [Unknown]
  - Stress fracture [Unknown]
  - Pain in extremity [Unknown]
  - Arthralgia [Unknown]
  - Gait disturbance [Unknown]
  - Low turnover osteopathy [Unknown]
